FAERS Safety Report 13231150 (Version 1)
Quarter: 2017Q1

REPORT INFORMATION
  Report Type: Report from Study
  Country: DE (occurrence: DE)
  Receive Date: 20170214
  Receipt Date: 20170214
  Transmission Date: 20170428
  Serious: Yes (Other)
  Sender: FDA-Public Use
  Company Number: DE-BAYER-2017-024523

PATIENT
  Sex: Female
  Weight: 83 kg

DRUGS (5)
  1. MARCUMAR [Concomitant]
     Active Substance: PHENPROCOUMON
     Indication: PHLEBECTOMY
  2. ARIXTRA [Concomitant]
     Active Substance: FONDAPARINUX SODIUM
     Indication: ANTICOAGULANT THERAPY
  3. YAZ [Suspect]
     Active Substance: DROSPIRENONE\ETHINYL ESTRADIOL
     Route: 048
  4. ARIXTRA [Concomitant]
     Active Substance: FONDAPARINUX SODIUM
     Indication: PHLEBECTOMY
  5. MARCUMAR [Concomitant]
     Active Substance: PHENPROCOUMON
     Indication: ANTICOAGULANT THERAPY

REACTIONS (5)
  - Limb discomfort [None]
  - Deep vein thrombosis [None]
  - Pain in extremity [None]
  - Peripheral swelling [None]
  - Phlebectomy [None]

NARRATIVE: CASE EVENT DATE: 20160704
